FAERS Safety Report 25494710 (Version 2)
Quarter: 2025Q3

REPORT INFORMATION
  Report Type: Report from Study
  Country: US (occurrence: US)
  Receive Date: 20250630
  Receipt Date: 20250718
  Transmission Date: 20251021
  Serious: No
  Sender: AGIOS PHARMACEUTICALS
  Company Number: US-AGIOS-2506US04325

PATIENT
  Age: 36 Year
  Sex: Male

DRUGS (1)
  1. MITAPIVAT [Suspect]
     Active Substance: MITAPIVAT
     Indication: Pyruvate kinase deficiency anaemia
     Route: 048
     Dates: start: 20230925

REACTIONS (6)
  - Fatigue [Not Recovered/Not Resolved]
  - Drug ineffective [Not Recovered/Not Resolved]
  - Haemoglobin abnormal [Unknown]
  - Blood bilirubin abnormal [Unknown]
  - Blood lactate dehydrogenase abnormal [Unknown]
  - Haptoglobin abnormal [Unknown]

NARRATIVE: CASE EVENT DATE: 20250630
